FAERS Safety Report 7316337-2 (Version None)
Quarter: 2011Q1

REPORT INFORMATION
  Report Type: 
  Country: None (occurrence: None)
  Receive Date: 20110225
  Receipt Date: 20110222
  Transmission Date: 20110831
  Serious: Yes (Other)
  Sender: FDA-Public Use
  Company Number: GB-ABBOTT-11P-167-0707053-00

PATIENT
  Sex: Female

DRUGS (2)
  1. HUMIRA [Suspect]
     Route: 058
  2. HUMIRA [Suspect]
     Indication: CROHN'S DISEASE
     Dates: start: 20100801

REACTIONS (10)
  - ILL-DEFINED DISORDER [None]
  - VISION BLURRED [None]
  - SKIN EXFOLIATION [None]
  - EYELIDS PRURITUS [None]
  - EYE PAIN [None]
  - MUCOSA VESICLE [None]
  - LIP DRY [None]
  - DRY EYE [None]
  - ULCERATIVE KERATITIS [None]
  - CHAPPED LIPS [None]
